FAERS Safety Report 13300887 (Version 1)
Quarter: 2017Q1

REPORT INFORMATION
  Report Type: Spontaneous
  Country: IT (occurrence: IT)
  Receive Date: 20170307
  Receipt Date: 20170307
  Transmission Date: 20170428
  Serious: Yes (Other)
  Sender: FDA-Public Use
  Company Number: IT-ACCORD-048747

PATIENT
  Age: 83 Year
  Sex: Male

DRUGS (2)
  1. QUETIAPINE/QUETIAPINE FUMARATE [Concomitant]
     Indication: HALLUCINATION, VISUAL
     Dosage: SINGLE DOSE AT NIGHT
  2. CARBIDOPA/LEVODOPA [Suspect]
     Active Substance: CARBIDOPA\LEVODOPA
     Indication: PARKINSON^S DISEASE
     Dosage: LEVODOPA 600 MG, CARBIDOPA 150 MG.?LEVODOPA WAS INCREASED TO 800 MG PER DAY.

REACTIONS (1)
  - Delusion of replacement [Recovered/Resolved]
